FAERS Safety Report 22664418 (Version 6)
Quarter: 2024Q1

REPORT INFORMATION
  Report Type: Spontaneous
  Country: US (occurrence: US)
  Receive Date: 20230703
  Receipt Date: 20240312
  Transmission Date: 20240410
  Serious: No
  Sender: FDA-Public Use
  Company Number: US-PFIZER INC-PV202300116367

PATIENT
  Age: 65 Year
  Sex: Female

DRUGS (2)
  1. INLYTA [Suspect]
     Active Substance: AXITINIB
     Indication: Renal cancer
     Dosage: 5 MG
     Dates: end: 202307
  2. INLYTA [Suspect]
     Active Substance: AXITINIB
     Dosage: TAKE 1 TABLET IN THE AM AND 1 TABLET IN THE PM

REACTIONS (2)
  - Insomnia [Unknown]
  - Rash [Recovering/Resolving]
